FAERS Safety Report 23553009 (Version 1)
Quarter: 2024Q1

REPORT INFORMATION
  Report Type: Spontaneous
  Country: US (occurrence: None)
  Receive Date: 20240221
  Receipt Date: 20240221
  Transmission Date: 20240410
  Serious: No
  Sender: FDA-Public Use
  Company Number: None

PATIENT
  Age: 28 Year
  Sex: Female
  Weight: 70.2 kg

DRUGS (1)
  1. MICONAZOLE 3 [Suspect]
     Active Substance: MICONAZOLE NITRATE
     Indication: Fungal infection
     Dosage: OTHER QUANTITY : 3 SUPPOSITORY(IES);?FREQUENCY : DAILY;?
     Route: 067
     Dates: start: 20240221, end: 20240221

REACTIONS (6)
  - Application site pain [None]
  - Application site pruritus [None]
  - Vulvovaginal pruritus [None]
  - Vulvovaginal burning sensation [None]
  - Vulvovaginal pruritus [None]
  - Vulvovaginal burning sensation [None]

NARRATIVE: CASE EVENT DATE: 20240221
